FAERS Safety Report 7184330-9 (Version None)
Quarter: 2010Q4

REPORT INFORMATION
  Report Type: 
  Country: None (occurrence: None)
  Receive Date: 20101222
  Receipt Date: 20101214
  Transmission Date: 20110411
  Serious: Yes (Death, Life-Threatening, Hospitalization)
  Sender: FDA-Public Use
  Company Number: US-BRISTOL-MYERS SQUIBB COMPANY-13323415

PATIENT
  Age: 57 Year
  Sex: Female
  Weight: 57 kg

DRUGS (10)
  1. CETUXIMAB [Suspect]
     Indication: NON-SMALL CELL LUNG CANCER
     Dosage: 12TH DOSE.18JAN2006-18JAN2006.400MG/M2
     Route: 042
     Dates: start: 20051026, end: 20060118
  2. TAXOTERE [Suspect]
     Indication: NON-SMALL CELL LUNG CANCER
     Dosage: 04JAN06-04JAN06.
     Dates: start: 20051026, end: 20060104
  3. TAXOTERE [Suspect]
     Indication: BREAST CANCER
     Dosage: 04JAN06-04JAN06.
     Dates: start: 20051026, end: 20060104
  4. CARBOPLATIN [Concomitant]
     Indication: BREAST CANCER
     Dates: start: 20041101, end: 20050531
  5. FENTANYL-100 [Concomitant]
  6. OXYCODONE HCL AND ACETAMINOPHEN [Concomitant]
  7. PHENERGAN [Concomitant]
  8. LEXAPRO [Concomitant]
  9. PROTONIX [Concomitant]
  10. MORPHINE [Concomitant]
     Dosage: 1DF=1-2 MG IV EVERY 1 HOUR AS NEEDED
     Route: 042

REACTIONS (3)
  - DEEP VEIN THROMBOSIS [None]
  - INTERSTITIAL LUNG DISEASE [None]
  - RESPIRATORY FAILURE [None]
